FAERS Safety Report 6046358-1 (Version None)
Quarter: 2009Q1

REPORT INFORMATION
  Report Type: 
  Country: None (occurrence: None)
  Receive Date: 20090122
  Receipt Date: 20090115
  Transmission Date: 20090719
  Serious: Yes (Other)
  Sender: FDA-Public Use
  Company Number: CA-ASTRAZENECA-2009UW01483

PATIENT
  Age: 84 Year
  Sex: Female

DRUGS (8)
  1. CRESTOR [Suspect]
     Dosage: 10MG
     Route: 048
  2. EXELON [Suspect]
     Dosage: 1.5MG, 3MG, 4.5MG
     Route: 048
  3. AVAPRO [Concomitant]
  4. NORVASC [Concomitant]
  5. SINGULAIR [Concomitant]
  6. TRAZODONE HCL [Concomitant]
  7. TYLENOL (CAPLET) [Concomitant]
  8. VITAMIN D [Concomitant]

REACTIONS (7)
  - BRONCHIAL HYPERREACTIVITY [None]
  - CEREBRAL ATROPHY [None]
  - CONFUSIONAL STATE [None]
  - DISEASE PROGRESSION [None]
  - HALLUCINATION, TACTILE [None]
  - HALLUCINATION, VISUAL [None]
  - HEADACHE [None]
